FAERS Safety Report 13341880 (Version 1)
Quarter: 2017Q1

REPORT INFORMATION
  Report Type: Spontaneous
  Country: US (occurrence: US)
  Receive Date: 20170316
  Receipt Date: 20170316
  Transmission Date: 20170428
  Serious: No
  Sender: FDA-Public Use
  Company Number: US-ROCHE-1725869

PATIENT
  Age: 72 Year
  Sex: Female

DRUGS (8)
  1. CLONAZEPAM. [Concomitant]
     Active Substance: CLONAZEPAM
     Route: 065
  2. SERTRALINE [Concomitant]
     Active Substance: SERTRALINE HYDROCHLORIDE
     Route: 065
  3. ERIVEDGE [Suspect]
     Active Substance: VISMODEGIB
     Indication: BASAL CELL CARCINOMA
     Dosage: AS DIRECTED
     Route: 048
     Dates: start: 20160112
  4. AZASITE [Concomitant]
     Active Substance: AZITHROMYCIN MONOHYDRATE
     Dosage: SOL 1%
     Route: 065
  5. QUETIAPINE. [Concomitant]
     Active Substance: QUETIAPINE
     Route: 065
  6. SIMVASTATIN. [Concomitant]
     Active Substance: SIMVASTATIN
     Route: 065
  7. HYDROCODONE BITARTRATE AND ACETAMINOPHEN [Concomitant]
     Active Substance: ACETAMINOPHEN\HYDROCODONE BITARTRATE
     Dosage: TABLET HYDROCO/APAP  10-325 MG
     Route: 065
  8. PROVENTIL HFA [Concomitant]
     Active Substance: ALBUTEROL SULFATE
     Route: 065

REACTIONS (3)
  - Muscle spasms [Not Recovered/Not Resolved]
  - Nausea [Not Recovered/Not Resolved]
  - Alopecia [Not Recovered/Not Resolved]

NARRATIVE: CASE EVENT DATE: 20160114
